FAERS Safety Report 8082696-9 (Version None)
Quarter: 2012Q1

REPORT INFORMATION
  Report Type: 
  Country: None (occurrence: None)
  Receive Date: 20120127
  Receipt Date: 20110223
  Transmission Date: 20120608
  Serious: No
  Sender: FDA-Public Use
  Company Number: US-ABBOTT-11P-163-0707620-00

PATIENT
  Sex: Female
  Weight: 118.04 kg

DRUGS (4)
  1. HUMIRA [Suspect]
     Indication: PSORIASIS
     Dates: start: 20110211, end: 20110211
  2. ZOLOFT [Concomitant]
     Indication: DEPRESSION
  3. LEVOTHYROXINE SODIUM [Concomitant]
     Indication: THYROID DISORDER
  4. HUMIRA [Suspect]
     Dates: start: 20110219

REACTIONS (5)
  - INJECTION SITE PRURITUS [None]
  - NAUSEA [None]
  - RASH [None]
  - INJECTION SITE ERYTHEMA [None]
  - FLUSHING [None]
